FAERS Safety Report 9438829 (Version 1)
Quarter: 2013Q3

REPORT INFORMATION
  Report Type: Spontaneous
  Country: CA (occurrence: CA)
  Receive Date: 20130802
  Receipt Date: 20130802
  Transmission Date: 20140515
  Serious: Yes (Other)
  Sender: FDA-Public Use
  Company Number: CA-CELGENEUS-028-21880-13073423

PATIENT
  Age: 49 Year
  Sex: Female

DRUGS (10)
  1. REVLIMID [Suspect]
     Indication: PLASMA CELL MYELOMA
     Dosage: 25 MILLIGRAM
     Route: 048
     Dates: start: 201103
  2. DEXAMETHASONE [Suspect]
     Indication: PLASMA CELL MYELOMA
     Dosage: 20 MILLIGRAM
     Route: 065
  3. TINZAPARIN [Concomitant]
     Indication: PULMONARY EMBOLISM
     Dosage: 13000 UNITS
     Route: 058
  4. MORPHINE [Concomitant]
     Indication: BACK PAIN
     Route: 030
  5. MORPHINE [Concomitant]
     Dosage: 2.5-5MG
     Route: 041
  6. MORPHINE [Concomitant]
     Dosage: 1-2 TABS
     Route: 048
  7. DIMENHYDRINATE [Concomitant]
     Indication: PRODUCT USED FOR UNKNOWN INDICATION
     Route: 030
  8. DIMENHYDRINATE [Concomitant]
     Route: 041
  9. KETOROLAC [Concomitant]
     Indication: PRODUCT USED FOR UNKNOWN INDICATION
     Route: 030
  10. STOOL SOFTENER [Concomitant]
     Indication: PRODUCT USED FOR UNKNOWN INDICATION
     Route: 065

REACTIONS (2)
  - Convulsion [Unknown]
  - Grand mal convulsion [Recovered/Resolved with Sequelae]
